FAERS Safety Report 19158695 (Version 1)
Quarter: 2021Q2

REPORT INFORMATION
  Report Type: Spontaneous
  Country: ES (occurrence: ES)
  Receive Date: 20210420
  Receipt Date: 20210420
  Transmission Date: 20210717
  Serious: Yes (Hospitalization)
  Sender: FDA-Public Use
  Company Number: ES-PFIZER INC-2021384462

PATIENT
  Age: 48 Year
  Sex: Female

DRUGS (6)
  1. RITUXIMAB. [Suspect]
     Active Substance: RITUXIMAB
     Indication: SYSTEMIC LUPUS ERYTHEMATOSUS
  2. RITUXIMAB. [Suspect]
     Active Substance: RITUXIMAB
     Indication: RHEUMATOID ARTHRITIS
     Dosage: 1 MG/ML
     Route: 042
  3. SALBUTAMOL [Concomitant]
     Active Substance: ALBUTEROL
  4. HYDROCORTISONE. [Concomitant]
     Active Substance: HYDROCORTISONE
     Route: 042
  5. MEROPENEM. [Concomitant]
     Active Substance: MEROPENEM
  6. EPINEPHRINE. [Concomitant]
     Active Substance: EPINEPHRINE
     Route: 030

REACTIONS (2)
  - Serum sickness [Recovering/Resolving]
  - Off label use [Unknown]
